FAERS Safety Report 11739961 (Version 2)
Quarter: 2015Q4

REPORT INFORMATION
  Report Type: Spontaneous
  Country: US (occurrence: US)
  Receive Date: 20151110
  Receipt Date: 20151120
  Transmission Date: 20160304
  Serious: No
  Sender: FDA-Public Use
  Company Number: US-ELI_LILLY_AND_COMPANY-US201111001400

PATIENT
  Age: 48 Year
  Sex: Female

DRUGS (4)
  1. FORTEO [Suspect]
     Active Substance: TERIPARATIDE
     Indication: HYPERPARATHYROIDISM
     Dosage: 20 UG, BID
     Dates: start: 200910
  2. FORTEO [Suspect]
     Active Substance: TERIPARATIDE
     Dosage: 20 UG, QD
  3. FORTEO [Suspect]
     Active Substance: TERIPARATIDE
     Dosage: 20 UG, QD
  4. FORTEO [Suspect]
     Active Substance: TERIPARATIDE
     Dosage: 20 UG, QD

REACTIONS (19)
  - Wrong technique in product usage process [Unknown]
  - Confusional state [Unknown]
  - Blood calcium decreased [Unknown]
  - Blood calcium decreased [Unknown]
  - Vomiting [Unknown]
  - Wrong technique in product usage process [Not Recovered/Not Resolved]
  - Retching [Unknown]
  - Sleep disorder due to a general medical condition [Unknown]
  - Intentional device misuse [Not Recovered/Not Resolved]
  - Incorrect drug administration duration [Unknown]
  - Feeling abnormal [Not Recovered/Not Resolved]
  - Muscle spasms [Unknown]
  - Off label use [Not Recovered/Not Resolved]
  - Sleep disorder due to a general medical condition [Unknown]
  - Feeling abnormal [Unknown]
  - Accidental overdose [Recovered/Resolved]
  - Restlessness [Unknown]
  - Accidental overdose [Unknown]
  - Drug dose omission [Unknown]

NARRATIVE: CASE EVENT DATE: 200910
